FAERS Safety Report 14986454 (Version 1)
Quarter: 2018Q2

REPORT INFORMATION
  Report Type: Report from Study
  Country: None (occurrence: AU)
  Receive Date: 20180607
  Receipt Date: 20180607
  Transmission Date: 20180711
  Serious: Yes (Hospitalization)
  Sender: FDA-Public Use
  Company Number: AU-ABBVIE-18K-008-2379982-00

PATIENT
  Sex: Male

DRUGS (2)
  1. HUMIRA [Suspect]
     Active Substance: ADALIMUMAB
     Route: 058
     Dates: start: 201805
  2. HUMIRA [Suspect]
     Active Substance: ADALIMUMAB
     Indication: PSORIATIC ARTHROPATHY
     Route: 058
     Dates: end: 201804

REACTIONS (4)
  - Nasopharyngitis [Recovering/Resolving]
  - Sleep apnoea syndrome [Recovering/Resolving]
  - Influenza [Recovering/Resolving]
  - Sensitivity to weather change [Recovering/Resolving]

NARRATIVE: CASE EVENT DATE: 2018
